FAERS Safety Report 15157113 (Version 1)
Quarter: 2018Q3

REPORT INFORMATION
  Report Type: Spontaneous
  Country: US (occurrence: US)
  Receive Date: 20180718
  Receipt Date: 20180718
  Transmission Date: 20181010
  Serious: Yes (Hospitalization)
  Sender: FDA-Public Use
  Company Number: US-INGENUS PHARMACEUTICALS NJ, LLC-ING201807-000688

PATIENT
  Sex: Female
  Weight: .87 kg

DRUGS (10)
  1. QUETIAPINE. [Suspect]
     Active Substance: QUETIAPINE
  2. ACETAMINOPHEN. [Suspect]
     Active Substance: ACETAMINOPHEN
  3. SODIUM ACETATE. [Concomitant]
     Active Substance: SODIUM ACETATE
     Indication: PARENTERAL NUTRITION
  4. CARISOPRODOL, ASPIRIN AND CODEINE PHOSPHATE [Suspect]
     Active Substance: ASPIRIN\CARISOPRODOL\CODEINE PHOSPHATE
  5. CAFFEINE. [Concomitant]
     Active Substance: CAFFEINE
  6. VITAMINS [Suspect]
     Active Substance: VITAMINS
  7. PORACTANT ALFA [Concomitant]
     Active Substance: PORACTANT ALFA
  8. GENTAMICIN. [Concomitant]
     Active Substance: GENTAMICIN
  9. AMPICILLIN [Concomitant]
     Active Substance: AMPICILLIN
  10. BETAMETHASONE. [Concomitant]
     Active Substance: BETAMETHASONE

REACTIONS (6)
  - Endotracheal intubation [Unknown]
  - Drug level increased [Unknown]
  - Foetal exposure during pregnancy [Unknown]
  - Toxicity to various agents [Unknown]
  - Coagulopathy [Unknown]
  - Resuscitation [Unknown]
